FAERS Safety Report 9776427 (Version 3)
Quarter: 2014Q1

REPORT INFORMATION
  Report Type: Spontaneous
  Country: US (occurrence: US)
  Receive Date: 20131220
  Receipt Date: 20140122
  Transmission Date: 20141002
  Serious: No
  Sender: FDA-Public Use
  Company Number: US-BIOGENIDEC-2013BI120835

PATIENT
  Age: 51 Year
  Sex: Female

DRUGS (12)
  1. TECFIDERA [Suspect]
     Indication: MULTIPLE SCLEROSIS
     Route: 048
     Dates: start: 20131120, end: 20131126
  2. TECFIDERA [Suspect]
     Indication: MULTIPLE SCLEROSIS
     Dates: start: 20131120
  3. TECFIDERA [Suspect]
     Indication: MULTIPLE SCLEROSIS
  4. TECFIDERA [Suspect]
     Indication: MULTIPLE SCLEROSIS
     Route: 048
     Dates: start: 20131127
  5. TECFIDERA [Suspect]
     Indication: MULTIPLE SCLEROSIS
  6. LEVOTHYROXINE [Concomitant]
  7. REQUIP [Concomitant]
  8. CVS OMEPRAZOLE DR [Concomitant]
  9. VITAMIN B12 [Concomitant]
  10. VITAMIN D [Concomitant]
  11. BABY ASPIRIN [Concomitant]
  12. REGLAN [Concomitant]

REACTIONS (5)
  - Oedema peripheral [Not Recovered/Not Resolved]
  - Dyspnoea [Not Recovered/Not Resolved]
  - Prescribed underdose [Unknown]
  - Depression [Not Recovered/Not Resolved]
  - Oedema [Not Recovered/Not Resolved]
